FAERS Safety Report 17009687 (Version 4)
Quarter: 2019Q4

REPORT INFORMATION
  Report Type: Spontaneous
  Country: HR (occurrence: HR)
  Receive Date: 20191108
  Receipt Date: 20191205
  Transmission Date: 20200122
  Serious: Yes (Death, Other)
  Sender: FDA-Public Use
  Company Number: HR-ABBVIE-19K-216-2995996-00

PATIENT
  Age: 55 Year
  Sex: Male

DRUGS (1)
  1. VENETOCLAX. [Suspect]
     Active Substance: VENETOCLAX
     Indication: CHRONIC LYMPHOCYTIC LEUKAEMIA
     Dosage: GRADUAL DOSE INCREASE TILL 200 MG IN 4TH WEEK OF THERAPY
     Route: 048
     Dates: start: 20190729, end: 20190904

REACTIONS (4)
  - Neutropenia [Fatal]
  - Chronic lymphocytic leukaemia [Unknown]
  - Septic shock [Fatal]
  - Infection [Fatal]

NARRATIVE: CASE EVENT DATE: 2019
